FAERS Safety Report 7712455-5 (Version None)
Quarter: 2011Q3

REPORT INFORMATION
  Report Type: 
  Country: None (occurrence: None)
  Receive Date: 20110823
  Receipt Date: 20110808
  Transmission Date: 20111222
  Serious: Yes (Other)
  Sender: FDA-Public Use
  Company Number: 7068948

PATIENT
  Age: 43 Year
  Sex: Female

DRUGS (4)
  1. LEVOTHYROXINE SODIUM [Suspect]
     Indication: THYROID HORMONE REPLACEMENT THERAPY
     Dosage: 1 DF (1 DF,1 IN 1 D) ORAL
     Route: 048
     Dates: start: 20101101
  2. SOMAVERT [Suspect]
     Dosage: 1 DF (1 DF,1 IN 1 D) SUBCUTANEOUS
     Route: 058
     Dates: start: 20060401, end: 20110101
  3. LEVOTHYROXINE SODIUM [Suspect]
     Indication: THYROID HORMONE REPLACEMENT THERAPY
     Dosage: 1 DF (1 DF,1 IN 1 D) ORAL
     Route: 048
     Dates: start: 20100101, end: 20101001
  4. SANDOSTATINE (OCTREOTIDE) (OCTREOTIDE) [Concomitant]

REACTIONS (4)
  - AFFECTIVE DISORDER [None]
  - ANXIETY DISORDER [None]
  - IRRITABILITY [None]
  - AGGRESSION [None]
